FAERS Safety Report 8918842 (Version 1)
Quarter: 2012Q4

REPORT INFORMATION
  Report Type: Spontaneous
  Country: US (occurrence: None)
  Receive Date: 20121115
  Receipt Date: 20121115
  Transmission Date: 20130627
  Serious: Yes (Disabling)
  Sender: FDA-Public Use
  Company Number: None

PATIENT
  Age: 40 Year
  Sex: Female
  Weight: 106.6 kg

DRUGS (2)
  1. HYDROCHLOROTHIAZIDE [Suspect]
     Indication: EDEMA
     Route: 048
  2. HYDROCHLOROTHIAZIDE [Suspect]
     Indication: BLOOD PRESSURE INCREASED
     Route: 048

REACTIONS (10)
  - Throat irritation [None]
  - Cough [None]
  - Vomiting [None]
  - Aphonia [None]
  - Gastrooesophageal reflux disease [None]
  - Vocal cord disorder [None]
  - Dysphonia [None]
  - Insomnia [None]
  - Blood sodium decreased [None]
  - Blood potassium decreased [None]
